FAERS Safety Report 10570215 (Version 1)
Quarter: 2014Q4

REPORT INFORMATION
  Report Type: Spontaneous
  Country: US (occurrence: None)
  Receive Date: 20141106
  Receipt Date: 20141106
  Transmission Date: 20150529
  Serious: Yes (Hospitalization)
  Sender: FDA-Public Use
  Company Number: None

PATIENT
  Age: 52 Year
  Sex: Male
  Weight: 147.42 kg

DRUGS (1)
  1. ANDRODERM [Suspect]
     Active Substance: TESTOSTERONE
     Indication: BLOOD TESTOSTERONE DECREASED
     Dosage: 4 MG 1 PATCH EVERY 24 HOURS ON SKIN
     Route: 061
     Dates: start: 20140714

REACTIONS (2)
  - Application site burn [None]
  - Chemical burn of skin [None]

NARRATIVE: CASE EVENT DATE: 20140313
